FAERS Safety Report 12499012 (Version 1)
Quarter: 2016Q2

REPORT INFORMATION
  Report Type: Report from Study
  Country: DE (occurrence: DE)
  Receive Date: 20160627
  Receipt Date: 20160627
  Transmission Date: 20160815
  Serious: Yes (Death)
  Sender: FDA-Public Use
  Company Number: DE-BEH-2016070582

PATIENT
  Age: 87 Year
  Sex: Female
  Weight: 64 kg

DRUGS (6)
  1. PRIVIGEN [Suspect]
     Active Substance: HUMAN IMMUNOGLOBULIN G
     Dosage: 10 G, TOT
     Route: 065
     Dates: start: 20150921
  2. PRIVIGEN [Suspect]
     Active Substance: HUMAN IMMUNOGLOBULIN G
     Indication: PLASMA CELL MYELOMA
     Dosage: 10 G, TOT
     Route: 065
     Dates: start: 20150504
  3. PRIVIGEN [Suspect]
     Active Substance: HUMAN IMMUNOGLOBULIN G
     Indication: SECONDARY IMMUNODEFICIENCY
     Dosage: 10 UNK, TOT
     Route: 065
     Dates: start: 20150601
  4. BONDRONAT                          /01304701/ [Concomitant]
     Active Substance: IBANDRONIC ACID
  5. ALLOPURINOL. [Concomitant]
     Active Substance: ALLOPURINOL
  6. PRIVIGEN [Suspect]
     Active Substance: HUMAN IMMUNOGLOBULIN G
     Indication: INFECTION
     Dosage: 10 G, TOT
     Route: 065
     Dates: start: 20150727

REACTIONS (1)
  - Death [Fatal]

NARRATIVE: CASE EVENT DATE: 20160118
